FAERS Safety Report 7597960-7 (Version None)
Quarter: 2011Q3

REPORT INFORMATION
  Report Type: 
  Country: None (occurrence: None)
  Receive Date: 20110708
  Receipt Date: 20110630
  Transmission Date: 20111222
  Serious: Yes (Other)
  Sender: FDA-Public Use
  Company Number: US-JNJFOC-20110700859

PATIENT
  Age: 9 Year
  Sex: Male
  Weight: 28.12 kg

DRUGS (6)
  1. KEPPRA [Concomitant]
     Indication: PRODUCT USED FOR UNKNOWN INDICATION
     Route: 065
  2. INTUNIV [Concomitant]
     Indication: PRODUCT USED FOR UNKNOWN INDICATION
     Route: 065
  3. VITAMIN B6 [Concomitant]
     Indication: PRODUCT USED FOR UNKNOWN INDICATION
     Route: 065
  4. DIPHENHYDRAMINE HCL [Suspect]
     Route: 048
  5. DIPHENHYDRAMINE HCL [Suspect]
     Indication: ARTHROPOD STING
     Dosage: ONE TABLET ONCE
     Route: 048
     Dates: start: 20110627, end: 20110627
  6. STRATTERA [Concomitant]
     Indication: PRODUCT USED FOR UNKNOWN INDICATION
     Route: 065

REACTIONS (3)
  - CONVULSION [None]
  - OFF LABEL USE [None]
  - EXPIRED DRUG ADMINISTERED [None]
